FAERS Safety Report 4863982-X (Version None)
Quarter: 2005Q4

REPORT INFORMATION
  Report Type: 
  Country: None (occurrence: None)
  Receive Date: 20051216
  Receipt Date: 20040610
  Transmission Date: 20060501
  Serious: Yes (Other)
  Sender: FDA-Public Use
  Company Number: 23223

PATIENT

DRUGS (2)
  1. EPHEDRINE SULFATE INJ USP 50 MG/1ML - BEDFORD LABS, INC [Suspect]
  2. MIDAZOLAM 5 MG/ML [Suspect]

REACTIONS (2)
  - CIRCUMSTANCE OR INFORMATION CAPABLE OF LEADING TO MEDICATION ERROR [None]
  - MEDICATION ERROR [None]
